FAERS Safety Report 9257621 (Version 1)
Quarter: 2013Q2

REPORT INFORMATION
  Report Type: Spontaneous
  Country: US (occurrence: None)
  Receive Date: 20130424
  Receipt Date: 20130424
  Transmission Date: 20140414
  Serious: No
  Sender: FDA-Public Use
  Company Number: None

PATIENT
  Age: 85 Year
  Sex: Male
  Weight: 80.5 kg

DRUGS (2)
  1. BACLOFEN [Suspect]
     Indication: PAIN
     Route: 048
     Dates: start: 20121004, end: 20121203
  2. TERAZOSIN [Suspect]
     Indication: BENIGN PROSTATIC HYPERPLASIA
     Route: 048
     Dates: start: 20120817, end: 20121203

REACTIONS (1)
  - Priapism [None]
